FAERS Safety Report 5272925-9 (Version None)
Quarter: 2007Q1

REPORT INFORMATION
  Report Type: 
  Country: None (occurrence: None)
  Receive Date: 20070322
  Receipt Date: 20060607
  Transmission Date: 20070707
  Serious: Yes (Congenital Anomaly)
  Sender: FDA-Public Use
  Company Number: MX-AVENTIS-200615881GDDC

PATIENT
  Sex: Female
  Weight: 2.6 kg

DRUGS (2)
  1. ARAVA [Suspect]
     Route: 048
     Dates: start: 20030101, end: 20051101
  2. DEFLAZACORT [Suspect]
     Route: 048
     Dates: start: 19980101

REACTIONS (1)
  - CEREBRAL VENTRICLE DILATATION [None]
